FAERS Safety Report 24130400 (Version 1)
Quarter: 2024Q3

REPORT INFORMATION
  Report Type: Spontaneous
  Country: CN (occurrence: CN)
  Receive Date: 20240724
  Receipt Date: 20240724
  Transmission Date: 20241017
  Serious: Yes (Hospitalization)
  Sender: ROCHE
  Company Number: CN-ROCHE-10000027305

PATIENT
  Age: 68 Year
  Sex: Male
  Weight: 55 kg

DRUGS (4)
  1. TRASTUZUMAB [Suspect]
     Active Substance: TRASTUZUMAB
     Indication: Chemotherapy
     Route: 042
     Dates: start: 20240705, end: 20240705
  2. GIMERACIL\OTERACIL\TEGAFUR [Suspect]
     Active Substance: GIMERACIL\OTERACIL POTASSIUM\TEGAFUR
     Indication: Chemotherapy
     Route: 048
     Dates: start: 20240705, end: 20240711
  3. SINTILIMAB [Suspect]
     Active Substance: SINTILIMAB
     Indication: Chemotherapy
     Route: 042
     Dates: start: 20240707, end: 20240707
  4. OXALIPLATIN [Suspect]
     Active Substance: OXALIPLATIN
     Indication: Chemotherapy
     Route: 042
     Dates: start: 20240705, end: 20240705

REACTIONS (1)
  - Myelosuppression [Recovering/Resolving]

NARRATIVE: CASE EVENT DATE: 20240708
